FAERS Safety Report 5348840-9 (Version None)
Quarter: 2007Q2

REPORT INFORMATION
  Report Type: 
  Country: None (occurrence: None)
  Receive Date: 20070605
  Receipt Date: 20070525
  Transmission Date: 20071010
  Serious: Yes (Other)
  Sender: FDA-Public Use
  Company Number: 2007322499

PATIENT
  Sex: Male
  Weight: 83.5 kg

DRUGS (1)
  1. BENADRYL (DIPHENHYDRAMINE) [Suspect]
     Indication: HYPERSENSITIVITY
     Dosage: 1 PILL ONCE (1 IN 1 D), ORAL
     Route: 048

REACTIONS (2)
  - MULTIPLE ALLERGIES [None]
  - SWELLING [None]
